FAERS Safety Report 17501392 (Version 3)
Quarter: 2020Q3

REPORT INFORMATION
  Report Type: Spontaneous
  Country: PT (occurrence: PT)
  Receive Date: 20200305
  Receipt Date: 20200416
  Transmission Date: 20201105
  Serious: Yes (Hospitalization, Other)
  Sender: FDA-Public Use
  Company Number: PT-MYLANLABS-2020M1020978

PATIENT
  Age: 42 Year
  Sex: Male

DRUGS (5)
  1. ACETAMINOPHEN. [Concomitant]
     Active Substance: ACETAMINOPHEN
     Indication: ORTHOPAEDIC PROCEDURE
     Dosage: 1 GRAM
  2. ETORICOXIB. [Suspect]
     Active Substance: ETORICOXIB
     Indication: SURGERY
     Dosage: 60 MILLIGRAM, TID (PER 8 HOURS)
     Route: 065
     Dates: start: 201801
  3. ETORICOXIB. [Suspect]
     Active Substance: ETORICOXIB
     Indication: ORTHOPAEDIC PROCEDURE
     Dosage: 60 MILLIGRAM, Q3D
     Route: 065
  4. IBUPROFEN. [Suspect]
     Active Substance: IBUPROFEN
     Indication: ORTHOPAEDIC PROCEDURE
     Dosage: 600 MILLIGRAM, UNK
     Route: 065
  5. ETORICOXIB. [Suspect]
     Active Substance: ETORICOXIB
     Dosage: 60 MILLIGRAM, Q8H

REACTIONS (11)
  - Hyperhidrosis [Recovered/Resolved]
  - Restlessness [Recovered/Resolved]
  - Intentional product misuse [Unknown]
  - Haematuria [Recovering/Resolving]
  - Tubulointerstitial nephritis [Recovered/Resolved]
  - Pyelonephritis acute [Recovering/Resolving]
  - Arthralgia [Recovered/Resolved]
  - Leukocyturia [Recovering/Resolving]
  - Pyrexia [Recovered/Resolved]
  - Chills [Recovered/Resolved]
  - Malaise [Recovered/Resolved]

NARRATIVE: CASE EVENT DATE: 201802
